FAERS Safety Report 10170481 (Version 2)
Quarter: 2014Q2

REPORT INFORMATION
  Report Type: Report from Study
  Country: US (occurrence: US)
  Receive Date: 20140513
  Receipt Date: 20140513
  Transmission Date: 20141212
  Serious: Yes (Hospitalization)
  Sender: FDA-Public Use
  Company Number: US-ABBVIE-12P-163-0972229-00

PATIENT
  Age: 73 Year
  Sex: Male
  Weight: 65.83 kg

DRUGS (14)
  1. HUMIRA [Suspect]
     Indication: PSORIASIS
     Route: 058
     Dates: start: 20120306
  2. VECTICAL [Concomitant]
     Indication: PSORIASIS
     Dates: start: 20090605
  3. IMDUR [Concomitant]
     Indication: ANGINA PECTORIS
     Dates: start: 20090403
  4. LIPITOR [Concomitant]
     Indication: BLOOD CHOLESTEROL INCREASED
     Dates: start: 2009
  5. PLAVIX [Concomitant]
     Indication: CEREBROVASCULAR ACCIDENT
     Dates: start: 20030119, end: 20120818
  6. PLAVIX [Concomitant]
     Dates: start: 201208
  7. HYDROCHLOROTHIAZIDE [Concomitant]
     Indication: HYPERTENSION
     Dates: start: 2009, end: 20140419
  8. ATENOLOL [Concomitant]
     Indication: HYPERTENSION
     Dates: start: 2009
  9. NIFEDIPINE [Concomitant]
     Indication: HYPERTENSION
     Dates: start: 2009
  10. BENICAR [Concomitant]
     Indication: HYPERTENSION
     Dates: start: 2009
  11. ASPIRIN [Concomitant]
     Indication: CEREBROVASCULAR ACCIDENT
     Dates: start: 20000108, end: 20120818
  12. ASPIRIN [Concomitant]
     Dates: start: 201208
  13. LOCOID [Concomitant]
     Indication: PSORIASIS
     Dates: start: 20090119
  14. DOVONEX [Concomitant]
     Indication: PSORIASIS
     Dates: start: 20110108, end: 201209

REACTIONS (3)
  - Gastritis haemorrhagic [Recovered/Resolved]
  - Colitis [Recovered/Resolved]
  - Anaemia [Recovered/Resolved]
